FAERS Safety Report 19745958 (Version 1)
Quarter: 2021Q3

REPORT INFORMATION
  Report Type: Spontaneous
  Country: US (occurrence: US)
  Receive Date: 20210824
  Receipt Date: 20210824
  Transmission Date: 20211014
  Serious: Yes (Disabling)
  Sender: FDA-Public Use
  Company Number: None

PATIENT
  Age: 27 Year
  Sex: Male
  Weight: 92.25 kg

DRUGS (2)
  1. FLOMAX [Concomitant]
     Active Substance: TAMSULOSIN HYDROCHLORIDE
  2. XIFAXAN [Suspect]
     Active Substance: RIFAXIMIN
     Indication: GASTROINTESTINAL BACTERIAL OVERGROWTH
     Dates: start: 20210712, end: 20210824

REACTIONS (5)
  - Erectile dysfunction [None]
  - Prostatomegaly [None]
  - Urethral pain [None]
  - Libido decreased [None]
  - Dysuria [None]

NARRATIVE: CASE EVENT DATE: 20210712
